FAERS Safety Report 10171043 (Version 1)
Quarter: 2014Q2

REPORT INFORMATION
  Report Type: Spontaneous
  Country: US (occurrence: US)
  Receive Date: 20140514
  Receipt Date: 20140514
  Transmission Date: 20141212
  Serious: No
  Sender: FDA-Public Use
  Company Number: US-009507513-1405USA004092

PATIENT
  Age: 71 Year
  Sex: Female

DRUGS (5)
  1. CELESTONE SOLUSPAN [Suspect]
     Indication: PAIN IN EXTREMITY
     Dosage: UNK
     Dates: start: 20140331, end: 20140331
  2. CELESTONE SOLUSPAN [Suspect]
     Dosage: UNK
     Dates: start: 201204, end: 201204
  3. OMEPRAZOLE [Concomitant]
     Dosage: 20 MG, QOD
  4. INDAPAMIDE [Concomitant]
     Dosage: 2.5 MG, QOD
  5. ZYRTEC [Concomitant]
     Dosage: 10 MG, QD

REACTIONS (6)
  - Visual impairment [Recovering/Resolving]
  - Vision blurred [Recovering/Resolving]
  - Eye disorder [Recovering/Resolving]
  - Influenza like illness [Recovering/Resolving]
  - Pyrexia [Recovering/Resolving]
  - Pharyngitis streptococcal [Recovering/Resolving]
